FAERS Safety Report 17917024 (Version 1)
Quarter: 2020Q2

REPORT INFORMATION
  Report Type: Spontaneous
  Country: US (occurrence: US)
  Receive Date: 20200619
  Receipt Date: 20200619
  Transmission Date: 20200714
  Serious: No
  Sender: FDA-Public Use
  Company Number: US-PFIZER INC-2020235542

PATIENT
  Age: 72 Year
  Sex: Female
  Weight: 96.16 kg

DRUGS (14)
  1. HYDROXYZINE PAMOATE. [Suspect]
     Active Substance: HYDROXYZINE PAMOATE
     Indication: RED MAN SYNDROME
  2. LORATADINE. [Suspect]
     Active Substance: LORATADINE
     Dosage: UNK, DAILY
  3. TAGAMET [Suspect]
     Active Substance: CIMETIDINE
     Indication: ABDOMINAL DISCOMFORT
  4. HYDROXYZINE PAMOATE. [Suspect]
     Active Substance: HYDROXYZINE PAMOATE
     Indication: PRURITUS
     Dosage: UNK
  5. HYDROXYZINE PAMOATE. [Suspect]
     Active Substance: HYDROXYZINE PAMOATE
     Indication: HYPERSENSITIVITY
  6. CLARITIN [Suspect]
     Active Substance: LORATADINE
     Dosage: UNK UNK, DAILY
  7. CIMETIDINE [Suspect]
     Active Substance: CIMETIDINE
     Indication: RED MAN SYNDROME
  8. ATARAX [Suspect]
     Active Substance: HYDROXYZINE HYDROCHLORIDE
     Indication: PRURITUS
     Dosage: UNK
  9. ATARAX [Suspect]
     Active Substance: HYDROXYZINE HYDROCHLORIDE
     Indication: RASH
  10. ATARAX [Suspect]
     Active Substance: HYDROXYZINE HYDROCHLORIDE
     Indication: RED MAN SYNDROME
  11. HYDROXYZINE PAMOATE. [Suspect]
     Active Substance: HYDROXYZINE PAMOATE
     Indication: RASH
  12. CIMETIDINE [Suspect]
     Active Substance: CIMETIDINE
     Indication: PRURITUS
     Dosage: 400 MG, 1X/DAY
     Route: 048
  13. DIPHENHYDRAMINE HCL [Suspect]
     Active Substance: DIPHENHYDRAMINE HYDROCHLORIDE
     Indication: HYPERSENSITIVITY
     Dosage: UNK
  14. TAGAMET [Suspect]
     Active Substance: CIMETIDINE
     Indication: PRURITUS
     Dosage: UNK

REACTIONS (1)
  - Therapeutic product effect incomplete [Unknown]
